FAERS Safety Report 23555779 (Version 1)
Quarter: 2024Q1

REPORT INFORMATION
  Report Type: Spontaneous
  Country: US (occurrence: US)
  Receive Date: 20240222
  Receipt Date: 20240222
  Transmission Date: 20240410
  Serious: No
  Sender: FDA-Public Use
  Company Number: US-NOVOPROD-1141313

PATIENT

DRUGS (3)
  1. VICTOZA [Suspect]
     Active Substance: LIRAGLUTIDE
     Indication: Type 2 diabetes mellitus
     Dosage: 0.6MG
     Route: 058
     Dates: start: 2022
  2. VICTOZA [Suspect]
     Active Substance: LIRAGLUTIDE
     Dosage: 0.6MG
     Route: 058
     Dates: start: 2023
  3. VICTOZA [Suspect]
     Active Substance: LIRAGLUTIDE
     Dosage: 1MG
     Route: 058

REACTIONS (2)
  - Abdominal pain upper [Recovered/Resolved]
  - Diarrhoea [Recovered/Resolved]
